FAERS Safety Report 18909358 (Version 1)
Quarter: 2021Q1

REPORT INFORMATION
  Report Type: Spontaneous
  Country: US (occurrence: US)
  Receive Date: 20210218
  Receipt Date: 20210218
  Transmission Date: 20210420
  Serious: No
  Sender: FDA-Public Use
  Company Number: None

PATIENT
  Age: 50 Year
  Sex: Female
  Weight: 84.15 kg

DRUGS (8)
  1. SYSTOLIC [Concomitant]
  2. BIOGIN [Concomitant]
  3. NATURE?THROID [Suspect]
     Active Substance: THYROID, PORCINE
     Indication: TRI-IODOTHYRONINE FREE DECREASED
  4. NATURE?THROID [Suspect]
     Active Substance: THYROID, PORCINE
     Indication: THYROXINE FREE DECREASED
  5. HCTZ [Concomitant]
     Active Substance: HYDROCHLOROTHIAZIDE
  6. MVI [Concomitant]
     Active Substance: VITAMINS
  7. ASA [Concomitant]
     Active Substance: ASPIRIN
  8. VERAPAMIL [Concomitant]
     Active Substance: VERAPAMIL HYDROCHLORIDE

REACTIONS (4)
  - Weight increased [None]
  - Alopecia [None]
  - Fatigue [None]
  - Nasopharyngitis [None]

NARRATIVE: CASE EVENT DATE: 20200101
